FAERS Safety Report 19417330 (Version 7)
Quarter: 2022Q3

REPORT INFORMATION
  Report Type: Spontaneous
  Country: JP (occurrence: JP)
  Receive Date: 20210615
  Receipt Date: 20220718
  Transmission Date: 20221027
  Serious: Yes (Hospitalization, Disabling, Other)
  Sender: FDA-Public Use
  Company Number: JP-GSKNCCC-CASE-01191612_AE-43348

PATIENT

DRUGS (8)
  1. VALTREX [Suspect]
     Active Substance: VALACYCLOVIR HYDROCHLORIDE
     Indication: Varicella
     Dosage: 1000 MG, TID
     Route: 048
     Dates: start: 20210407, end: 20210412
  2. VALTREX [Suspect]
     Active Substance: VALACYCLOVIR HYDROCHLORIDE
     Dosage: 83 MG/KG/DAY
  3. CALONAL [Concomitant]
     Active Substance: ACETAMINOPHEN
     Indication: Pyrexia
     Dosage: 2 DF
     Route: 048
     Dates: start: 20210407, end: 20210412
  4. DIPHENHYDRAMINE [Concomitant]
     Active Substance: DIPHENHYDRAMINE
     Indication: Pruritus
     Dosage: UNK
     Route: 050
     Dates: start: 20210407, end: 20210412
  5. CEFDITOREN PIVOXIL TABLETS [Concomitant]
     Indication: Infection
     Dosage: 100 MG, TID
     Route: 048
     Dates: start: 20210410, end: 20210410
  6. DEXTROSE [Concomitant]
     Active Substance: DEXTROSE
     Indication: Dehydration
     Dosage: 500 ML
     Route: 041
     Dates: start: 20210410, end: 20210410
  7. DEXTROSE [Concomitant]
     Active Substance: DEXTROSE
     Dosage: UNK
     Dates: start: 20210412, end: 20210412
  8. ROCEPHIN [Concomitant]
     Active Substance: CEFTRIAXONE SODIUM
     Indication: Infection
     Dosage: 1.5 G
     Route: 041
     Dates: start: 20210410, end: 20210410

REACTIONS (24)
  - Acute kidney injury [Recovered/Resolved]
  - Renal disorder [Recovered/Resolved]
  - Renal failure [Recovered/Resolved]
  - Tubulointerstitial nephritis [Recovered/Resolved]
  - Toxicity to various agents [Recovered/Resolved]
  - Hypertension [Recovered/Resolved]
  - Pyrexia [Recovered/Resolved]
  - Headache [Recovered/Resolved]
  - Nausea [Recovered/Resolved]
  - Abdominal pain [Unknown]
  - Hypophagia [Recovered/Resolved]
  - Renal impairment [Recovering/Resolving]
  - Pyelonephritis acute [Unknown]
  - Dehydration [Recovered/Resolved]
  - Inflammation [Recovering/Resolving]
  - Pyuria [Unknown]
  - Urinary tract infection [Unknown]
  - Asthenia [Recovered/Resolved]
  - Vomiting [Unknown]
  - Decreased appetite [Unknown]
  - Infection [Unknown]
  - Malaise [Unknown]
  - Type IV hypersensitivity reaction [Unknown]
  - Overdose [Unknown]

NARRATIVE: CASE EVENT DATE: 20210407
